FAERS Safety Report 24813081 (Version 2)
Quarter: 2025Q1

REPORT INFORMATION
  Report Type: Spontaneous
  Country: FR (occurrence: FR)
  Receive Date: 20250107
  Receipt Date: 20250110
  Transmission Date: 20250408
  Serious: Yes (Other)
  Sender: SANOFI AVENTIS
  Company Number: FR-MLMSERVICE-20241227-PI326932-00249-1

PATIENT
  Age: 48 Year
  Sex: Male

DRUGS (6)
  1. DEXAMETHASONE [Suspect]
     Active Substance: DEXAMETHASONE
     Indication: High-grade B-cell lymphoma
  2. DEXAMETHASONE [Suspect]
     Active Substance: DEXAMETHASONE
     Indication: High grade B-cell lymphoma recurrent
  3. OXALIPLATIN [Suspect]
     Active Substance: OXALIPLATIN
     Indication: High-grade B-cell lymphoma
  4. OXALIPLATIN [Suspect]
     Active Substance: OXALIPLATIN
     Indication: High grade B-cell lymphoma recurrent
  5. CYTARABINE [Suspect]
     Active Substance: CYTARABINE
     Indication: High-grade B-cell lymphoma
  6. CYTARABINE [Suspect]
     Active Substance: CYTARABINE
     Indication: High grade B-cell lymphoma recurrent

REACTIONS (2)
  - Tumour lysis syndrome [Unknown]
  - Renal failure [Unknown]
